FAERS Safety Report 10370394 (Version 1)
Quarter: 2014Q3

REPORT INFORMATION
  Report Type: Spontaneous
  Country: US (occurrence: None)
  Receive Date: 20140807
  Receipt Date: 20140807
  Transmission Date: 20150326
  Serious: Yes (Hospitalization)
  Sender: FDA-Public Use
  Company Number: None

PATIENT
  Age: 62 Year
  Sex: Male
  Weight: 128.8 kg

DRUGS (6)
  1. VINCRISTINE SULFATE. [Suspect]
     Active Substance: VINCRISTINE SULFATE
     Dates: end: 20140612
  2. METHOTREXATE [Suspect]
     Active Substance: METHOTREXATE
     Dates: end: 20140718
  3. MERCAPTOPURINE. [Suspect]
     Active Substance: MERCAPTOPURINE
     Dates: end: 20140710
  4. CYCLOPHOSPHAMIDE. [Suspect]
     Active Substance: CYCLOPHOSPHAMIDE
     Dates: end: 20140627
  5. CYTARABINE. [Suspect]
     Active Substance: CYTARABINE
     Dates: end: 20140707
  6. DAUNORUBICIN [Suspect]
     Active Substance: DAUNORUBICIN
     Dates: end: 20140528

REACTIONS (5)
  - Autonomic neuropathy [None]
  - Condition aggravated [None]
  - Diabetic neuropathy [None]
  - Fall [None]
  - Orthostatic hypotension [None]

NARRATIVE: CASE EVENT DATE: 20140724
